FAERS Safety Report 8809970 (Version 1)
Quarter: 2012Q4

REPORT INFORMATION
  Report Type: 
  Country: GR (occurrence: GR)
  Receive Date: 20120926
  Receipt Date: 20120926
  Transmission Date: 20130627
  Serious: Yes (Other)
  Sender: FDA-Public Use
  Company Number: GR-009507513-1209GRC009225

PATIENT

DRUGS (4)
  1. TEMODAL [Suspect]
     Dosage: 200 mg/m2, D1-D5 every 28 days
     Route: 048
  2. LAPATINIB DITOSYLATE [Concomitant]
     Indication: MALIGNANT GLIOMA
     Dosage: 1000 mg, UNK
  3. LAPATINIB DITOSYLATE [Concomitant]
     Dosage: 1250 mg, UNK
  4. LAPATINIB DITOSYLATE [Concomitant]
     Dosage: 1500 mg, UNK

REACTIONS (1)
  - Haematotoxicity [Unknown]
